FAERS Safety Report 5291997-9 (Version None)
Quarter: 2007Q2

REPORT INFORMATION
  Report Type: 
  Country: None (occurrence: None)
  Receive Date: 20070403
  Receipt Date: 20070320
  Transmission Date: 20071010
  Serious: Yes (Hospitalization)
  Sender: FDA-Public Use
  Company Number: 2007PV028767

PATIENT
  Age: 42 Year
  Sex: Female
  Weight: 99.7913 kg

DRUGS (11)
  1. BYETTA [Suspect]
     Indication: DIABETES MELLITUS NON-INSULIN-DEPENDENT
     Dosage: SEE IMAGE
     Route: 058
     Dates: start: 20050629, end: 20050729
  2. BYETTA [Suspect]
     Indication: DIABETES MELLITUS NON-INSULIN-DEPENDENT
     Dosage: SEE IMAGE
     Route: 058
     Dates: start: 20050729, end: 20061001
  3. BYETTA [Suspect]
     Indication: DIABETES MELLITUS NON-INSULIN-DEPENDENT
     Dosage: SEE IMAGE
     Route: 058
     Dates: start: 20061101
  4. METFORMIN HCL [Concomitant]
  5. SYNTHROID [Concomitant]
  6. ANTARA [Concomitant]
  7. SINGULAIR [Concomitant]
  8. DIGOXIN [Concomitant]
  9. IRON SUPPLEMENT [Concomitant]
  10. ESTRADIOL [Concomitant]
  11. OMEGA-3 FISH OIL [Concomitant]

REACTIONS (2)
  - CONDITION AGGRAVATED [None]
  - OVARIAN CYST [None]
